FAERS Safety Report 7211139-X (Version None)
Quarter: 2011Q1

REPORT INFORMATION
  Report Type: 
  Country: None (occurrence: None)
  Receive Date: 20110105
  Receipt Date: 20101223
  Transmission Date: 20110831
  Serious: Yes (Hospitalization, Other)
  Sender: FDA-Public Use
  Company Number: GXKR2010DK07506

PATIENT

DRUGS (1)
  1. SUMATRIPTAN [Suspect]
     Indication: MIGRAINE
     Dosage: 50-100 MG TABLETS
     Route: 048
     Dates: start: 20030301, end: 20100504

REACTIONS (6)
  - MUSCLE TWITCHING [None]
  - PAIN IN EXTREMITY [None]
  - SCAR [None]
  - MUSCULOSKELETAL DISORDER [None]
  - SENSORY DISTURBANCE [None]
  - FATIGUE [None]
